FAERS Safety Report 5154993-8 (Version None)
Quarter: 2006Q4

REPORT INFORMATION
  Report Type: 
  Country: None (occurrence: None)
  Receive Date: 20061120
  Receipt Date: 20061120
  Transmission Date: 20070319
  Serious: Yes (Other)
  Sender: FDA-Public Use
  Company Number: None

PATIENT
  Age: 85 Year
  Sex: Male
  Weight: 81.6475 kg

DRUGS (2)
  1. VANCOMYCIN [Suspect]
     Indication: HIP ARTHROPLASTY
     Dosage: 1 GRAM   ONE TIME   IV
     Route: 042
     Dates: start: 20060808, end: 20060808
  2. VANCOMYCIN [Suspect]
     Indication: PREOPERATIVE CARE
     Dosage: 1 GRAM   ONE TIME   IV
     Route: 042
     Dates: start: 20060808, end: 20060808

REACTIONS (3)
  - FLUSHING [None]
  - PRURITUS [None]
  - URTICARIA [None]
